FAERS Safety Report 5844762-5 (Version None)
Quarter: 2008Q3

REPORT INFORMATION
  Report Type: 
  Country: None (occurrence: None)
  Receive Date: 20080814
  Receipt Date: 20080804
  Transmission Date: 20090109
  Serious: Yes (Other)
  Sender: FDA-Public Use
  Company Number: US-JNJFOC-20060306908

PATIENT
  Sex: Male
  Weight: 90.72 kg

DRUGS (11)
  1. RISPERDAL [Suspect]
     Indication: DRUG USE FOR UNKNOWN INDICATION
  2. ZYPREXA [Suspect]
  3. ZYPREXA [Suspect]
  4. ZYPREXA [Suspect]
  5. ZYPREXA [Suspect]
  6. ZYPREXA [Suspect]
  7. ZYPREXA [Suspect]
  8. ZYPREXA [Suspect]
  9. ZYPREXA [Suspect]
  10. ZYPREXA [Suspect]
  11. ZYPREXA [Suspect]
     Indication: BIPOLAR DISORDER

REACTIONS (1)
  - TYPE 2 DIABETES MELLITUS [None]
